FAERS Safety Report 13796018 (Version 1)
Quarter: 2017Q3

REPORT INFORMATION
  Report Type: Spontaneous
  Country: US (occurrence: US)
  Receive Date: 20170726
  Receipt Date: 20170726
  Transmission Date: 20171127
  Serious: No
  Sender: FDA-Public Use
  Company Number: US-MYLANLABS-2017M1015422

PATIENT
  Sex: Female
  Weight: 108.84 kg

DRUGS (4)
  1. GILENYA [Concomitant]
     Active Substance: FINGOLIMOD HYDROCHLORIDE
     Indication: PRODUCT USED FOR UNKNOWN INDICATION
  2. VITAMIN D                          /00107901/ [Concomitant]
     Active Substance: ERGOCALCIFEROL
     Indication: PRODUCT USED FOR UNKNOWN INDICATION
  3. PAIN RELIEVER [Concomitant]
     Indication: PAIN
  4. ARMODAFINIL. [Suspect]
     Active Substance: ARMODAFINIL
     Indication: MULTIPLE SCLEROSIS
     Dosage: 225 MG IN MORNING, 150 MG MIDDAY
     Route: 048
     Dates: start: 201702

REACTIONS (2)
  - Off label use [Unknown]
  - No adverse event [Unknown]
